FAERS Safety Report 13855460 (Version 1)
Quarter: 2017Q3

REPORT INFORMATION
  Report Type: Spontaneous
  Country: DE (occurrence: DE)
  Receive Date: 20170810
  Receipt Date: 20170810
  Transmission Date: 20171127
  Serious: Yes (Death, Other)
  Sender: FDA-Public Use
  Company Number: DE-JNJFOC-20170807544

PATIENT
  Sex: Female

DRUGS (1)
  1. RIVAROXABAN [Suspect]
     Active Substance: RIVAROXABAN
     Indication: PORTAL VEIN THROMBOSIS
     Route: 048

REACTIONS (6)
  - Complications of transplanted liver [Fatal]
  - Shunt occlusion [Unknown]
  - Thrombocytosis [Unknown]
  - Product use in unapproved indication [Unknown]
  - Hepatorenal syndrome [Unknown]
  - Off label use [Unknown]
